FAERS Safety Report 10052597 (Version 4)
Quarter: 2014Q2

REPORT INFORMATION
  Report Type: Spontaneous
  Country: LY (occurrence: LY)
  Receive Date: 20140402
  Receipt Date: 20140509
  Transmission Date: 20141212
  Serious: Yes (Death, Hospitalization)
  Sender: FDA-Public Use
  Company Number: LY-ABBVIE-14P-097-1219447-00

PATIENT
  Age: 1 Day
  Sex: Female
  Weight: 1.18 kg

DRUGS (7)
  1. SURVANTA [Suspect]
     Indication: NEONATAL RESPIRATORY DISTRESS SYNDROME
     Dosage: 2 DOSES,5CC,2 DOSES
     Dates: start: 20140227, end: 20140301
  2. AMPICILLIN [Concomitant]
     Indication: INFECTION
     Route: 042
     Dates: start: 20140227, end: 20140301
  3. AMPICILLIN [Concomitant]
     Indication: INFECTION PROPHYLAXIS
  4. AMINOPHYLIN [Concomitant]
     Indication: INFECTION PROPHYLAXIS
     Dosage: 1MG/12HR
     Route: 042
     Dates: start: 20140227, end: 20140301
  5. AMINOPHYLIN [Concomitant]
     Indication: NEONATAL RESPIRATORY DISTRESS SYNDROME
  6. AMINOPHYLIN [Concomitant]
     Indication: RESPIRATORY DISORDER
  7. CLAFORAN [Concomitant]
     Indication: INFECTION
     Dosage: 50MG/12HR
     Route: 042
     Dates: start: 20140227, end: 20140301

REACTIONS (2)
  - Pulmonary haemorrhage [Fatal]
  - Respiratory acidosis [Recovered/Resolved]
